FAERS Safety Report 16565086 (Version 1)
Quarter: 2019Q3

REPORT INFORMATION
  Report Type: Spontaneous
  Country: US (occurrence: US)
  Receive Date: 20190711
  Receipt Date: 20190711
  Transmission Date: 20191004
  Serious: Yes (Hospitalization)
  Sender: FDA-Public Use
  Company Number: None

PATIENT
  Age: 60 Year
  Sex: Female

DRUGS (10)
  1. ATENOLOL TAB 50 MG [Concomitant]
     Active Substance: ATENOLOL
  2. CHLORHEX GLU SOL 0.12% [Concomitant]
  3. LIPITOR TAB 40 MG [Concomitant]
  4. ZETIA TAB 10 MG [Concomitant]
  5. RANITIDINE INJ 50 MG / 2 ML [Concomitant]
  6. EZETIMBE TAB 10 MG [Concomitant]
  7. PLAVIX TAB 75 MG [Concomitant]
  8. SYNTHROID TAB 50 MCG [Concomitant]
  9. ATORVASTATIN TAB 40 MG [Concomitant]
     Active Substance: ATORVASTATIN
  10. HUMIRA [Suspect]
     Active Substance: ADALIMUMAB
     Indication: PSORIATIC ARTHROPATHY
     Dosage: ?          OTHER FREQUENCY:EVERY OTHER WEEK;?
     Route: 058
     Dates: start: 20160325

REACTIONS (3)
  - Sinusitis [None]
  - Haemorrhage [None]
  - Polyp [None]
